FAERS Safety Report 6386007-6 (Version None)
Quarter: 2009Q4

REPORT INFORMATION
  Report Type: 
  Country: None (occurrence: None)
  Receive Date: 20091002
  Receipt Date: 20081107
  Transmission Date: 20100525
  Serious: No
  Sender: FDA-Public Use
  Company Number: US-ASTRAZENECA-2008UW24938

PATIENT
  Age: 56 Year
  Sex: Female
  Weight: 90.7 kg

DRUGS (4)
  1. ARIMIDEX [Suspect]
     Indication: BREAST CANCER FEMALE
     Route: 048
     Dates: start: 20081031
  2. LOTREL [Concomitant]
     Dosage: 40 MG
  3. METOPROLOL [Concomitant]
     Dosage: 100 MG
  4. KLONOPIN [Concomitant]
     Dosage: AS NEEDED

REACTIONS (1)
  - CHEST PAIN [None]
